FAERS Safety Report 9656005 (Version 1)
Quarter: 2013Q4

REPORT INFORMATION
  Report Type: Spontaneous
  Country: US (occurrence: None)
  Receive Date: 20131029
  Receipt Date: 20131029
  Transmission Date: 20140711
  Serious: No
  Sender: FDA-Public Use
  Company Number: None

PATIENT
  Age: 71 Year
  Sex: Female
  Weight: 62.14 kg

DRUGS (1)
  1. CEPHALEXIN [Suspect]
     Dosage: 250 FOUR TIMES DAILY
     Route: 048

REACTIONS (2)
  - Rash [None]
  - Dry skin [None]
